FAERS Safety Report 11356651 (Version 1)
Quarter: 2015Q3

REPORT INFORMATION
  Report Type: Spontaneous
  Country: US (occurrence: US)
  Receive Date: 20150803
  Receipt Date: 20150803
  Transmission Date: 20151125
  Serious: No
  Sender: FDA-Public Use
  Company Number: US-ELI_LILLY_AND_COMPANY-US201112000990

PATIENT
  Age: 23 Year
  Sex: Male
  Weight: 81.63 kg

DRUGS (1)
  1. STRATTERA [Suspect]
     Active Substance: ATOMOXETINE HYDROCHLORIDE
     Indication: ATTENTION DEFICIT/HYPERACTIVITY DISORDER
     Dosage: 25 MG, QD
     Route: 048
     Dates: start: 200912, end: 201001

REACTIONS (27)
  - Feeling hot [Recovered/Resolved]
  - Tension [Not Recovered/Not Resolved]
  - Conjunctivitis [Recovered/Resolved]
  - Bone density decreased [Unknown]
  - Blood cortisol decreased [Unknown]
  - Arthropathy [Recovering/Resolving]
  - Insomnia [Not Recovered/Not Resolved]
  - Erectile dysfunction [Recovered/Resolved]
  - Fatigue [Recovered/Resolved]
  - Muscle tightness [Not Recovered/Not Resolved]
  - Asthenia [Not Recovered/Not Resolved]
  - Adrenal disorder [Recovering/Resolving]
  - Soft tissue atrophy [Unknown]
  - Insulin-like growth factor decreased [Unknown]
  - Intentional product misuse [Not Recovered/Not Resolved]
  - Weight decreased [Not Recovered/Not Resolved]
  - Blood cortisol increased [Recovered/Resolved]
  - Headache [Recovered/Resolved]
  - Irritability [Recovered/Resolved]
  - Nasopharyngitis [Recovered/Resolved]
  - Muscle atrophy [Unknown]
  - Hallucination, visual [Recovered/Resolved]
  - Malaise [Recovered/Resolved]
  - Muscle spasms [Unknown]
  - Arthralgia [Recovering/Resolving]
  - Dizziness [Recovered/Resolved]
  - Exercise tolerance decreased [Not Recovered/Not Resolved]
